FAERS Safety Report 9824900 (Version 2)
Quarter: 2014Q1

REPORT INFORMATION
  Report Type: Report from Study
  Country: CA (occurrence: CA)
  Receive Date: 20140117
  Receipt Date: 20140117
  Transmission Date: 20141002
  Serious: Yes (Other)
  Sender: FDA-Public Use
  Company Number: CA-ROCHE-1139290

PATIENT
  Age: 47 Year
  Sex: Female
  Weight: 142.2 kg

DRUGS (11)
  1. RITUXIMAB [Suspect]
     Indication: RHEUMATOID ARTHRITIS
     Dosage: LAST DOSE OF RITUXIMAB: 18/JUL/2013
     Route: 042
     Dates: start: 20120912
  2. BISOPROLOL [Concomitant]
  3. FOLIC ACID [Concomitant]
  4. HYDROCHLOROTHIAZIDE [Concomitant]
  5. TYLENOL ARTHRITIS [Concomitant]
  6. SYNTHROID [Concomitant]
  7. MAGNESIUM GLUCONATE [Concomitant]
  8. METHOTREXATE [Concomitant]
  9. DIPHENHYDRAMINE HCL [Concomitant]
     Route: 048
     Dates: start: 20120912
  10. ACETAMINOPHEN [Concomitant]
     Route: 048
     Dates: start: 20120912
  11. METHYLPREDNISOLONE [Concomitant]
     Route: 042
     Dates: start: 20120912

REACTIONS (9)
  - Joint range of motion decreased [Unknown]
  - Diarrhoea [Not Recovered/Not Resolved]
  - Abdominal pain [Not Recovered/Not Resolved]
  - Chills [Recovered/Resolved]
  - Pain [Not Recovered/Not Resolved]
  - Inflammation [Not Recovered/Not Resolved]
  - Weight increased [Unknown]
  - Device dislocation [Recovering/Resolving]
  - Limb discomfort [Recovering/Resolving]
